FAERS Safety Report 7522836-0 (Version None)
Quarter: 2011Q2

REPORT INFORMATION
  Report Type: 
  Country: None (occurrence: None)
  Receive Date: 20110603
  Receipt Date: 20110523
  Transmission Date: 20111010
  Serious: Yes (Hospitalization)
  Sender: FDA-Public Use
  Company Number: PHHY2011GB43946

PATIENT
  Age: 52 Year
  Sex: Female

DRUGS (5)
  1. EPIRUBICIN [Suspect]
     Indication: BREAST CANCER
  2. FLUOROURACIL [Suspect]
  3. CYCLOPHOSPHAMIDE [Concomitant]
     Indication: BREAST CANCER
  4. DOTHIEPIN [Concomitant]
  5. RADIOTHERAPY [Concomitant]
     Indication: BREAST CANCER

REACTIONS (8)
  - CARDIAC FAILURE [None]
  - ORTHOPNOEA [None]
  - SYNCOPE [None]
  - CARDIOMEGALY [None]
  - DYSPNOEA EXERTIONAL [None]
  - TACHYCARDIA [None]
  - RALES [None]
  - CARDIOMYOPATHY [None]
